FAERS Safety Report 14772571 (Version 1)
Quarter: 2018Q2

REPORT INFORMATION
  Report Type: Spontaneous
  Country: DE (occurrence: DE)
  Receive Date: 20180418
  Receipt Date: 20180418
  Transmission Date: 20180711
  Serious: Yes (Death, Hospitalization, Other)
  Sender: FDA-Public Use
  Company Number: DE-SUN PHARMACEUTICAL INDUSTRIES LTD-2017R1-138345

PATIENT
  Age: 56 Year
  Sex: Male

DRUGS (9)
  1. CISPLATIN. [Suspect]
     Active Substance: CISPLATIN
     Indication: TESTICULAR GERM CELL CANCER METASTATIC
     Dosage: 2 DOSES WITH 20 MG/M2, 1 DOSE WITH 10 MG/M2; CYCLICAL
     Route: 042
     Dates: start: 20120416, end: 20120428
  2. CISPLATIN. [Suspect]
     Active Substance: CISPLATIN
     Indication: SEMINOMA
     Dosage: CYCLICAL
     Route: 065
  3. ACETYLSALICYLIC ACID [Suspect]
     Active Substance: ASPIRIN
     Indication: ANTIPLATELET THERAPY
     Dosage: ()
     Route: 065
  4. CLOPIDOGREL [Suspect]
     Active Substance: CLOPIDOGREL BISULFATE
     Indication: ANTIPLATELET THERAPY
     Dosage: UNK
     Route: 065
  5. CISPLATIN. [Suspect]
     Active Substance: CISPLATIN
     Dosage: UNK
  6. BLEOMYCIN [Suspect]
     Active Substance: BLEOMYCIN SULFATE
     Indication: TESTICULAR GERM CELL CANCER METASTATIC
     Dosage: CYCLICAL
     Route: 065
  7. ETOPOSIDE. [Suspect]
     Active Substance: ETOPOSIDE
     Indication: TESTICULAR GERM CELL CANCER METASTATIC
     Dosage: 2 DOSES WITH 100 MG/M2, 1 DOSE WITH 50 MG/M2 ; CYCLICAL
     Route: 042
     Dates: start: 20120416, end: 20120428
  8. ETOPOSIDE. [Suspect]
     Active Substance: ETOPOSIDE
     Indication: SEMINOMA
     Dosage: CYCLICAL
     Route: 065
  9. BLEOMYCIN [Suspect]
     Active Substance: BLEOMYCIN SULFATE
     Indication: SEMINOMA
     Dosage: UNK
     Route: 065

REACTIONS (14)
  - Thrombocytopenia [Unknown]
  - Cerebral artery occlusion [Fatal]
  - Cerebral infarction [Unknown]
  - Cerebral artery stenosis [Unknown]
  - Hemiparesis [Unknown]
  - Arterial occlusive disease [Fatal]
  - Subdural haemorrhage [Not Recovered/Not Resolved]
  - Cerebral infarction [Unknown]
  - Dysarthria [Unknown]
  - Facial paralysis [Unknown]
  - Ischaemic cerebral infarction [Fatal]
  - Hemiplegia [Unknown]
  - Brain oedema [Fatal]
  - Subdural haemorrhage [Unknown]

NARRATIVE: CASE EVENT DATE: 20120414
